FAERS Safety Report 15075015 (Version 2)
Quarter: 2023Q4

REPORT INFORMATION
  Report Type: Spontaneous
  Country: US (occurrence: US)
  Receive Date: 20180627
  Receipt Date: 20231109
  Transmission Date: 20240110
  Serious: Yes (Other)
  Sender: FDA-Public Use
  Company Number: US-SAOL THERAPEUTICS-2017SAO01574

PATIENT
  Age: 55 Year
  Sex: Female

DRUGS (3)
  1. BACLOFEN [Suspect]
     Active Substance: BACLOFEN
     Indication: Pain
     Dosage: 6.18 ?G, \DAY
     Route: 037
  2. DILAUDID [Suspect]
     Active Substance: HYDROMORPHONE HYDROCHLORIDE
     Dosage: 7.4 MG, \DAY
     Route: 037
  3. INFUMORPH [Suspect]
     Active Substance: MORPHINE SULFATE
     Route: 037

REACTIONS (6)
  - Influenza like illness [Unknown]
  - Pain [Unknown]
  - Device power source issue [Recovered/Resolved]
  - Off label use [Unknown]
  - Drug withdrawal syndrome [Recovered/Resolved]
  - Device failure [Recovered/Resolved]

NARRATIVE: CASE EVENT DATE: 20170922
